FAERS Safety Report 7553740-X (Version None)
Quarter: 2011Q2

REPORT INFORMATION
  Report Type: 
  Country: None (occurrence: None)
  Receive Date: 20110609
  Receipt Date: 20110601
  Transmission Date: 20111010
  Serious: Yes (Death)
  Sender: FDA-Public Use
  Company Number: IPX_00102_2011

PATIENT
  Sex: Female
  Weight: 61.1 kg

DRUGS (2)
  1. CYCLODOL /00002601/ [Concomitant]
  2. CARBIDOPA AND LEVODOPA [Suspect]
     Indication: PARKINSON'S DISEASE
     Dosage: (585 MG 5X/DAY ORAL)
     Route: 048
     Dates: start: 20101227, end: 20110426

REACTIONS (3)
  - SUDDEN DEATH [None]
  - PANCREATITIS HAEMORRHAGIC [None]
  - PANCREATITIS ACUTE [None]
